FAERS Safety Report 9994561 (Version 2)
Quarter: 2014Q1

REPORT INFORMATION
  Report Type: Spontaneous
  Country: CA (occurrence: CA)
  Receive Date: 20140311
  Receipt Date: 20140313
  Transmission Date: 20141002
  Serious: Yes (Death, Other)
  Sender: FDA-Public Use
  Company Number: CA-ROCHE-1360980

PATIENT
  Age: 59 Year
  Sex: Male

DRUGS (1)
  1. CYTOVENE [Suspect]
     Indication: ORGAN TRANSPLANT
     Route: 042
     Dates: start: 20131101, end: 20131104

REACTIONS (5)
  - Sepsis [Fatal]
  - Multi-organ failure [Fatal]
  - Shock [Fatal]
  - Subarachnoid haemorrhage [Fatal]
  - Hyperammonaemia [Recovered/Resolved]
